FAERS Safety Report 6595930-9 (Version None)
Quarter: 2010Q1

REPORT INFORMATION
  Report Type: 
  Country: None (occurrence: None)
  Receive Date: 20100219
  Receipt Date: 20100219
  Transmission Date: 20100710
  Serious: Yes (Hospitalization)
  Sender: FDA-Public Use
  Company Number: None

PATIENT
  Age: 82 Year
  Sex: Male
  Weight: 61 kg

DRUGS (2)
  1. OXYBUTYNIN [Suspect]
     Indication: INCONTINENCE
     Dosage: 5 MG TID PO
     Route: 048
     Dates: start: 20091013
  2. LISINOPRIL [Suspect]
     Indication: HYPERTENSION
     Dosage: 5 MG EVERY DAY PO
     Route: 048
     Dates: start: 20081003

REACTIONS (6)
  - ANAEMIA [None]
  - ARTHRALGIA [None]
  - DIZZINESS [None]
  - FALL [None]
  - FEMUR FRACTURE [None]
  - INCONTINENCE [None]
